FAERS Safety Report 22531820 (Version 1)
Quarter: 2023Q2

REPORT INFORMATION
  Report Type: Spontaneous
  Country: US (occurrence: None)
  Receive Date: 20230606
  Receipt Date: 20230606
  Transmission Date: 20230722
  Serious: No
  Sender: FDA-Public Use
  Company Number: None

PATIENT
  Sex: Female

DRUGS (17)
  1. CAPECITABINE [Suspect]
     Active Substance: CAPECITABINE
     Indication: Cholangiocarcinoma
     Dosage: 3T BID PO MON-FRI FOR 5 WKS
     Route: 048
     Dates: start: 20230113
  2. CAPECITABINE [Suspect]
     Active Substance: CAPECITABINE
     Indication: Cholangiocarcinoma
     Dosage: 1T BID PO 14D ON/7D OFF
     Route: 048
     Dates: start: 20230113
  3. GEMCITABINE [Concomitant]
     Active Substance: GEMCITABINE
  4. VITAMIN D [Concomitant]
     Active Substance: VITAMIN D NOS
  5. MIRALAX [Concomitant]
     Active Substance: POLYETHYLENE GLYCOL 3350
  6. PREMEDS FOR GEMZAAR [Concomitant]
  7. ASPIRIN [Concomitant]
     Active Substance: ASPIRIN
  8. AMLODIPINE [Concomitant]
     Active Substance: AMLODIPINE BESYLATE
  9. FOLIC ACID [Concomitant]
     Active Substance: FOLIC ACID
  10. AMOXICILLIN [Concomitant]
     Active Substance: AMOXICILLIN
  11. VITAMIN B12 [Concomitant]
     Active Substance: CYANOCOBALAMIN
  12. VALACYCLOVIR [Concomitant]
     Active Substance: VALACYCLOVIR HYDROCHLORIDE
  13. MELATONIN [Concomitant]
     Active Substance: MELATONIN
  14. PROLIA [Concomitant]
     Active Substance: DENOSUMAB
  15. RADIATION THERAPY [Concomitant]
     Active Substance: RADIATION THERAPY
  16. SM BLOOD PRESSURE MONITOR DEVICE [Concomitant]
  17. COLACE [Concomitant]
     Active Substance: DOCUSATE SODIUM

REACTIONS (2)
  - Therapy interrupted [None]
  - Solar lentigo [None]
